FAERS Safety Report 11340037 (Version 1)
Quarter: 2015Q3

REPORT INFORMATION
  Report Type: Spontaneous
  Country: US (occurrence: None)
  Receive Date: 20150804
  Receipt Date: 20150804
  Transmission Date: 20151125
  Serious: Yes (Other)
  Sender: FDA-Public Use
  Company Number: None

PATIENT
  Age: 66 Year
  Sex: Female
  Weight: 103.42 kg

DRUGS (7)
  1. IMMODIUM AD [Concomitant]
  2. SYNTHROID [Concomitant]
     Active Substance: LEVOTHYROXINE SODIUM
  3. BACLOFEN 10 MG IVAX PHARMACEAU [Suspect]
     Active Substance: BACLOFEN
     Indication: MUSCLE SPASMS
     Dosage: ONE PILL  ONCE DAILY TAKEN BY MOUTH
     Route: 048
     Dates: start: 20150729, end: 20150729
  4. ADVIL [Concomitant]
     Active Substance: IBUPROFEN
  5. CLARITIN 24 HR [Concomitant]
  6. LISINOPRIL. [Concomitant]
     Active Substance: LISINOPRIL
  7. ADVIST [Concomitant]

REACTIONS (2)
  - Tinnitus [None]
  - Hearing impaired [None]

NARRATIVE: CASE EVENT DATE: 20150729
